FAERS Safety Report 25890955 (Version 1)
Quarter: 2025Q4

REPORT INFORMATION
  Report Type: Spontaneous
  Country: US (occurrence: None)
  Receive Date: 20251007
  Receipt Date: 20251007
  Transmission Date: 20260117
  Serious: Yes (Other)
  Sender: FDA-CTU
  Company Number: None

PATIENT
  Age: 65 Year
  Sex: Female
  Weight: 101.1 kg

DRUGS (14)
  1. LURASIDONE [Suspect]
     Active Substance: LURASIDONE
     Indication: Bipolar II disorder
     Dosage: FREQUENCY : DAILY;?
     Route: 048
     Dates: start: 20241201, end: 20250925
  2. VENLAFAXINE [Concomitant]
     Active Substance: VENLAFAXINE HYDROCHLORIDE
  3. LAMOTRIGINE [Concomitant]
     Active Substance: LAMOTRIGINE
  4. TRAZODONE [Concomitant]
     Active Substance: TRAZODONE HYDROCHLORIDE
  5. METFORMIN [Concomitant]
     Active Substance: METFORMIN HYDROCHLORIDE
  6. ketoconazole-hydrocortisone ointment [Concomitant]
  7. HUMALOG [Concomitant]
     Active Substance: INSULIN LISPRO
  8. LANTUS [Concomitant]
     Active Substance: INSULIN GLARGINE
  9. JANUVIA [Concomitant]
     Active Substance: SITAGLIPTIN PHOSPHATE
  10. LOSARTAN [Concomitant]
     Active Substance: LOSARTAN
  11. EZETIMIBE [Concomitant]
     Active Substance: EZETIMIBE
  12. METOPROLOL [Concomitant]
     Active Substance: METOPROLOL
  13. LUBIPROSTONE [Concomitant]
     Active Substance: LUBIPROSTONE
  14. PANTOPRAZOLE [Concomitant]
     Active Substance: PANTOPRAZOLE

REACTIONS (1)
  - Anal pruritus [None]

NARRATIVE: CASE EVENT DATE: 20250925
